FAERS Safety Report 12402493 (Version 2)
Quarter: 2016Q2

REPORT INFORMATION
  Report Type: Spontaneous
  Country: US (occurrence: US)
  Receive Date: 20160525
  Receipt Date: 20160527
  Transmission Date: 20160815
  Serious: Yes (Life-Threatening)
  Sender: FDA-Public Use
  Company Number: US-SA-2016SA047535

PATIENT
  Age: 63 Year
  Sex: Male

DRUGS (4)
  1. HUMULIN R [Concomitant]
     Active Substance: INSULIN HUMAN
  2. HUMULIN N [Concomitant]
     Active Substance: INSULIN HUMAN
  3. LEVEMIR [Concomitant]
     Active Substance: INSULIN DETEMIR
  4. LANTUS [Suspect]
     Active Substance: INSULIN GLARGINE
     Indication: TYPE 1 DIABETES MELLITUS
     Dosage: HAS BEEN ON LANTUS FOR 14 YEARS ON AND OFF DOSE:60 UNIT(S)
     Route: 065
     Dates: start: 2002

REACTIONS (3)
  - Blood glucose decreased [Unknown]
  - Drug ineffective [Unknown]
  - Fall [Unknown]
